FAERS Safety Report 7674406-1 (Version None)
Quarter: 2011Q3

REPORT INFORMATION
  Report Type: 
  Country: None (occurrence: None)
  Receive Date: 20110810
  Receipt Date: 20110728
  Transmission Date: 20111222
  Serious: Yes (Hospitalization)
  Sender: FDA-Public Use
  Company Number: BR-ELI_LILLY_AND_COMPANY-BR201106006327

PATIENT
  Age: 61 Year
  Sex: Female

DRUGS (6)
  1. GEMZAR [Suspect]
     Indication: BREAST CANCER METASTATIC
     Dosage: UNK UNK, UNKNOWN
     Route: 065
     Dates: start: 20091001, end: 20100901
  2. ANASTROZOLE [Concomitant]
     Dosage: UNK, UNKNOWN
     Route: 065
     Dates: start: 20100901, end: 20110301
  3. CISPLATIN [Concomitant]
     Dosage: UNK, UNKNOWN
     Route: 065
     Dates: start: 20110316, end: 20110316
  4. VINORELBINA [Concomitant]
     Indication: BREAST CANCER METASTATIC
     Dosage: 25 MG/M2, UNKNOWN
     Route: 065
  5. GEMZAR [Suspect]
     Dosage: UNK, UNKNOWN
     Route: 065
     Dates: end: 20110615
  6. CISPLATIN [Concomitant]
     Indication: BREAST CANCER METASTATIC
     Dosage: UNK, UNKNOWN
     Route: 065
     Dates: start: 20091001, end: 20100901

REACTIONS (8)
  - MALAISE [None]
  - EYELID OEDEMA [None]
  - TACHYCARDIA [None]
  - CHILLS [None]
  - DYSPNOEA [None]
  - HYPERAEMIA [None]
  - HYPERTENSION [None]
  - PRURITUS [None]
